FAERS Safety Report 6981993-5 (Version None)
Quarter: 2010Q3

REPORT INFORMATION
  Report Type: 
  Country: None (occurrence: None)
  Receive Date: 20100914
  Receipt Date: 20091207
  Transmission Date: 20110219
  Serious: Yes (Other)
  Sender: FDA-Public Use
  Company Number: US-PFIZER INC-2009286592

PATIENT
  Sex: Female
  Weight: 68.027 kg

DRUGS (6)
  1. LYRICA [Suspect]
     Indication: DIABETIC FOOT
     Dosage: 50 MG, 3X/DAY
     Route: 048
     Dates: start: 20090421, end: 20091017
  2. LYRICA [Suspect]
     Indication: SCIATICA
  3. ICAPS [Concomitant]
     Indication: EYE DISORDER
     Dosage: UNK
  4. METFORMIN HYDROCHLORIDE [Concomitant]
     Dosage: UNK
  5. LORAZEPAM [Concomitant]
     Indication: SLEEP DISORDER
     Dosage: UNK
  6. METHOTREXATE SODIUM [Concomitant]
     Dosage: UNK

REACTIONS (8)
  - ABDOMINAL DISCOMFORT [None]
  - CRYING [None]
  - DEPRESSED MOOD [None]
  - DEPRESSION [None]
  - DIARRHOEA [None]
  - FEELING ABNORMAL [None]
  - HEADACHE [None]
  - SUICIDAL IDEATION [None]
